FAERS Safety Report 7261521-X (Version None)
Quarter: 2011Q1

REPORT INFORMATION
  Report Type: 
  Country: None (occurrence: None)
  Receive Date: 20110124
  Receipt Date: 20110124
  Transmission Date: 20110831
  Serious: Yes (Hospitalization)
  Sender: FDA-Public Use
  Company Number: None

PATIENT
  Sex: Male

DRUGS (1)
  1. ALCOHOL SWABS FROM COPAXONE PREFLD SYR KIT 30'S - 20MG TEVA NEUROSCIEN [Suspect]

REACTIONS (3)
  - SKIN INFECTION [None]
  - PRODUCT QUALITY ISSUE [None]
  - DEVICE RELATED INFECTION [None]
